FAERS Safety Report 16733131 (Version 1)
Quarter: 2019Q3

REPORT INFORMATION
  Report Type: Report from Study
  Country: None (occurrence: US)
  Receive Date: 20190823
  Receipt Date: 20190823
  Transmission Date: 20191005
  Serious: Yes (Other)
  Sender: FDA-Public Use
  Company Number: US-ABBVIE-19K-163-2886274-00

PATIENT
  Sex: Female

DRUGS (4)
  1. DEXILANT [Concomitant]
     Active Substance: DEXLANSOPRAZOLE
     Indication: GASTROOESOPHAGEAL REFLUX DISEASE
  2. HUMIRA [Suspect]
     Active Substance: ADALIMUMAB
     Indication: OSTEOARTHRITIS
     Route: 058
     Dates: start: 20190811
  3. HUMIRA [Suspect]
     Active Substance: ADALIMUMAB
     Indication: ANKYLOSING SPONDYLITIS
     Route: 058
     Dates: start: 2014, end: 20190630
  4. DEXILANT [Concomitant]
     Active Substance: DEXLANSOPRAZOLE
     Indication: OESOPHAGEAL STENOSIS

REACTIONS (9)
  - Joint instability [Unknown]
  - Thoracic spinal stenosis [Unknown]
  - Sacralisation [Unknown]
  - Osteoarthritis [Not Recovered/Not Resolved]
  - Ankylosing spondylitis [Not Recovered/Not Resolved]
  - Intervertebral disc protrusion [Unknown]
  - Spinal instability [Not Recovered/Not Resolved]
  - Spinal osteoarthritis [Unknown]
  - Vertebral foraminal stenosis [Unknown]
